FAERS Safety Report 5495004-4 (Version None)
Quarter: 2007Q4

REPORT INFORMATION
  Report Type: 
  Country: None (occurrence: None)
  Receive Date: 20071024
  Receipt Date: 20071017
  Transmission Date: 20080405
  Serious: Yes (Other)
  Sender: FDA-Public Use
  Company Number: CA-ASTRAZENECA-2007UW24396

PATIENT
  Age: 38 Year
  Sex: Female
  Weight: 52.3 kg

DRUGS (2)
  1. SEROQUEL [Suspect]
     Route: 048
     Dates: start: 20060901
  2. TOPAMAX [Suspect]
     Route: 048
     Dates: start: 20061201

REACTIONS (3)
  - ANORGASMIA [None]
  - LIBIDO DECREASED [None]
  - SEXUAL DYSFUNCTION [None]
